FAERS Safety Report 16117948 (Version 1)
Quarter: 2019Q1

REPORT INFORMATION
  Report Type: Spontaneous
  Country: US (occurrence: US)
  Receive Date: 20190326
  Receipt Date: 20190326
  Transmission Date: 20190418
  Serious: Yes (Hospitalization)
  Sender: FDA-Public Use
  Company Number: US-JNJFOC-20190329716

PATIENT
  Age: 60 Year
  Sex: Male

DRUGS (1)
  1. INVOKANA [Suspect]
     Active Substance: CANAGLIFLOZIN
     Indication: PRODUCT USED FOR UNKNOWN INDICATION
     Route: 048
     Dates: end: 201705

REACTIONS (8)
  - Injury [Unknown]
  - Cellulitis [Unknown]
  - Abscess limb [Unknown]
  - Postoperative wound infection [Unknown]
  - Diabetic foot infection [Unknown]
  - Sepsis [Unknown]
  - Osteomyelitis [Unknown]
  - Limb amputation [Unknown]

NARRATIVE: CASE EVENT DATE: 201702
